FAERS Safety Report 23153439 (Version 1)
Quarter: 2023Q4

REPORT INFORMATION
  Report Type: Spontaneous
  Country: US (occurrence: None)
  Receive Date: 20231106
  Receipt Date: 20231106
  Transmission Date: 20240110
  Serious: Yes (Other)
  Sender: FDA-Public Use
  Company Number: None

PATIENT
  Age: 35 Year
  Sex: Female
  Weight: 101.7 kg

DRUGS (2)
  1. RINVOQ [Suspect]
     Active Substance: UPADACITINIB
     Indication: Colitis ulcerative
     Dosage: FREQUENCY : DAILY;?
     Route: 048
     Dates: start: 20220726, end: 20231001
  2. METHOTREXATE [Suspect]
     Active Substance: METHOTREXATE
     Dates: start: 20220101, end: 20231001

REACTIONS (1)
  - Pregnancy [None]

NARRATIVE: CASE EVENT DATE: 20230901
